FAERS Safety Report 9338835 (Version 16)
Quarter: 2014Q2

REPORT INFORMATION
  Report Type: Report from Study
  Country: AU (occurrence: AU)
  Receive Date: 20130610
  Receipt Date: 20140425
  Transmission Date: 20141212
  Serious: Yes (Hospitalization, Other)
  Sender: FDA-Public Use
  Company Number: AU-ROCHE-1230404

PATIENT
  Age: 66 Year
  Sex: Female
  Weight: 67.8 kg

DRUGS (17)
  1. VISMODEGIB [Suspect]
     Indication: BASAL CELL CARCINOMA
     Dosage: THE MOST RECENT DOSE OF VISMODEGIB WAS ADMINISTERED ON 26/MAY/2013.
     Route: 048
     Dates: start: 20130325, end: 20130526
  2. VISMODEGIB [Suspect]
     Route: 048
     Dates: start: 20130715
  3. FLUCLOXACILLIN [Suspect]
     Indication: ABSCESS LIMB
     Route: 065
     Dates: start: 20130527, end: 20130527
  4. FLUCLOXACILLIN [Suspect]
     Route: 065
     Dates: start: 20130528, end: 20130529
  5. PANADOL OSTEO [Concomitant]
     Indication: OSTEOARTHRITIS
     Route: 065
     Dates: start: 201206
  6. MICARDIS [Concomitant]
     Indication: HYPERTENSION
     Route: 065
     Dates: start: 201211
  7. MICARDIS [Concomitant]
     Route: 065
     Dates: start: 20130528, end: 20130603
  8. NEXIUM [Concomitant]
     Indication: GASTROOESOPHAGEAL REFLUX DISEASE
     Route: 065
     Dates: start: 201302, end: 20130526
  9. NEXIUM [Concomitant]
     Route: 065
     Dates: start: 20130528, end: 20130602
  10. NEXIUM [Concomitant]
     Route: 065
     Dates: start: 20130603
  11. GINKGO BILOBA [Concomitant]
     Route: 065
     Dates: start: 201206, end: 20130526
  12. GINKGO BILOBA [Concomitant]
     Route: 065
     Dates: start: 20130629
  13. VITAMIN D3 [Concomitant]
     Indication: VITAMIN D DEFICIENCY
     Route: 065
     Dates: start: 201206, end: 20130526
  14. VITAMIN D3 [Concomitant]
     Route: 065
     Dates: start: 20130629
  15. IBILEX [Concomitant]
     Indication: ABSCESS
     Route: 065
     Dates: start: 20130524, end: 20130526
  16. PANADOL EXTRA [Concomitant]
     Indication: BACK PAIN
     Route: 065
     Dates: start: 20140101
  17. AMITRIPTYLINE [Concomitant]
     Indication: DEPRESSION
     Route: 065
     Dates: start: 20140228

REACTIONS (2)
  - Abscess limb [Recovered/Resolved]
  - Liver function test abnormal [Recovered/Resolved]
